FAERS Safety Report 5750984-4 (Version None)
Quarter: 2008Q2

REPORT INFORMATION
  Report Type: 
  Country: None (occurrence: None)
  Receive Date: 20080528
  Receipt Date: 20080522
  Transmission Date: 20081010
  Serious: Yes (Other)
  Sender: FDA-Public Use
  Company Number: JP-ASTRAZENECA-2008AP03888

PATIENT
  Age: 76 Year
  Sex: Male

DRUGS (11)
  1. CRESTOR [Suspect]
     Dosage: MON/WED/FRI
     Route: 048
     Dates: start: 20071124
  2. DENTAL ANESTHESIA [Suspect]
     Dosage: DOSE UNKNOWN
     Route: 065
  3. HARNAL [Concomitant]
     Dosage: DOSE UNKNOWN
     Route: 048
  4. ALFASULY [Concomitant]
     Dosage: DOSE UNKNOWN
     Route: 048
  5. MASHI-NIN-GAN [Concomitant]
     Dosage: DOSE UNKNOWN
     Route: 048
  6. ASPIRIN [Concomitant]
     Dosage: DOSE UNKNOWN
     Route: 048
  7. MAGMITT [Concomitant]
     Dosage: DOSE UNKNOWN
     Route: 048
  8. SERENAL [Concomitant]
     Dosage: DOSE UNKNOWN
     Route: 048
  9. RIZE [Concomitant]
     Dosage: DOSE UNKNOWN
     Route: 048
  10. NELUROLEN [Concomitant]
     Dosage: DOSE UNKNOWN
     Route: 048
  11. PAXIL [Concomitant]
     Dosage: DOSE UNKNOWN
     Route: 048

REACTIONS (2)
  - BLOOD PRESSURE INCREASED [None]
  - LOSS OF CONSCIOUSNESS [None]
